FAERS Safety Report 12540161 (Version 1)
Quarter: 2016Q3

REPORT INFORMATION
  Report Type: Spontaneous
  Country: GB (occurrence: GB)
  Receive Date: 20160708
  Receipt Date: 20160708
  Transmission Date: 20161109
  Serious: Yes (Hospitalization, Other)
  Sender: FDA-Public Use
  Company Number: GB-PFIZER INC-2016330385

PATIENT
  Age: 70 Year

DRUGS (3)
  1. METRONIDAZOLE. [Concomitant]
     Active Substance: METRONIDAZOLE
     Indication: CHOLECYSTITIS
     Dosage: UNK
  2. METHOTREXATE SODIUM. [Suspect]
     Active Substance: METHOTREXATE SODIUM
     Dosage: UNK
  3. SEPTRIN [Suspect]
     Active Substance: SULFAMETHOXAZOLE\TRIMETHOPRIM
     Indication: CHOLECYSTITIS
     Dosage: UNK

REACTIONS (4)
  - Contraindicated product administered [Unknown]
  - Bone marrow failure [Unknown]
  - Cholecystitis [Unknown]
  - Pancytopenia [Unknown]

NARRATIVE: CASE EVENT DATE: 201510
